FAERS Safety Report 25473894 (Version 1)
Quarter: 2025Q2

REPORT INFORMATION
  Report Type: Spontaneous
  Country: US (occurrence: None)
  Receive Date: 20250623
  Receipt Date: 20250623
  Transmission Date: 20250717
  Serious: Yes (Hospitalization)
  Sender: FDA-CTU
  Company Number: None

PATIENT
  Sex: Male

DRUGS (2)
  1. LENALIDOMIDE [Suspect]
     Active Substance: LENALIDOMIDE
     Indication: Plasma cell myeloma
     Dosage: 5 MG DAILY ORAL ?
     Route: 048
  2. POMALYST [Suspect]
     Active Substance: POMALIDOMIDE

REACTIONS (4)
  - Syncope [None]
  - Diarrhoea [None]
  - Blood pressure fluctuation [None]
  - Lethargy [None]
